FAERS Safety Report 7229265-8 (Version None)
Quarter: 2011Q1

REPORT INFORMATION
  Report Type: 
  Country: None (occurrence: None)
  Receive Date: 20110117
  Receipt Date: 20110106
  Transmission Date: 20110831
  Serious: Yes (Hospitalization, Other)
  Sender: FDA-Public Use
  Company Number: US-ELI_LILLY_AND_COMPANY-US201101001812

PATIENT
  Sex: Female

DRUGS (8)
  1. SINGULAIR [Concomitant]
     Dosage: 10 MG, DAILY (1/D)
  2. PREVACID [Concomitant]
     Indication: GASTROOESOPHAGEAL REFLUX DISEASE
     Dosage: 30 MG, DAILY (1/D)
  3. DICLOFENAC SODIUM [Concomitant]
     Dosage: 50 MG, 2/D
  4. ZOMIG [Concomitant]
     Indication: MIGRAINE
     Dosage: 2.5 MG, AS NEEDED
  5. POTASSIUM [Concomitant]
     Dosage: 60 MG, DAILY (1/D)
  6. FORTEO [Suspect]
     Indication: OSTEOPOROSIS
     Dosage: 20 UG, DAILY (1/D)
     Dates: start: 20101209
  7. LYRICA [Concomitant]
     Dosage: 50 MG, EACH EVENING
  8. AMBIEN [Concomitant]
     Dosage: 10 MG, EACH EVENING

REACTIONS (5)
  - MOVEMENT DISORDER [None]
  - FALL [None]
  - ASTHENIA [None]
  - INJURY [None]
  - HIP FRACTURE [None]
